FAERS Safety Report 22126708 (Version 2)
Quarter: 2023Q1

REPORT INFORMATION
  Report Type: Spontaneous
  Country: US (occurrence: US)
  Receive Date: 20230322
  Receipt Date: 20230322
  Transmission Date: 20230418
  Serious: No
  Sender: FDA-Public Use
  Company Number: US-ALLERGAN-2304399US

PATIENT
  Age: 68 Year
  Sex: Female
  Weight: 99.336 kg

DRUGS (2)
  1. ESTRADIOL [Suspect]
     Active Substance: ESTRADIOL
     Indication: Urinary incontinence
     Dosage: UNK, QD
     Route: 067
     Dates: start: 20230210, end: 20230215
  2. UNSPECIFIED INGREDIENT [Concomitant]
     Active Substance: UNSPECIFIED INGREDIENT
     Indication: Product used for unknown indication

REACTIONS (5)
  - Skin reaction [Not Recovered/Not Resolved]
  - Off label use [Not Recovered/Not Resolved]
  - Dysuria [Not Recovered/Not Resolved]
  - Vulvovaginal pruritus [Not Recovered/Not Resolved]
  - Vulvovaginal discomfort [Not Recovered/Not Resolved]

NARRATIVE: CASE EVENT DATE: 20230212
